FAERS Safety Report 9701454 (Version 1)
Quarter: 2013Q4

REPORT INFORMATION
  Report Type: Spontaneous
  Country: US (occurrence: US)
  Receive Date: 20131121
  Receipt Date: 20131121
  Transmission Date: 20140711
  Serious: Yes (Hospitalization)
  Sender: FDA-Public Use
  Company Number: US-PFIZER INC-2013329340

PATIENT
  Age: 49 Year
  Sex: Male

DRUGS (1)
  1. VFEND [Suspect]
     Indication: LUNG TRANSPLANT
     Dosage: 200 MG, 2X/DAY
     Dates: start: 20130325

REACTIONS (1)
  - Gallbladder disorder [Recovered/Resolved]
